FAERS Safety Report 5835492-4 (Version None)
Quarter: 2008Q3

REPORT INFORMATION
  Report Type: 
  Country: None (occurrence: None)
  Receive Date: 20080806
  Receipt Date: 20080725
  Transmission Date: 20090109
  Serious: Yes (Other)
  Sender: FDA-Public Use
  Company Number: JP-ROCHE-573420

PATIENT
  Sex: Male
  Weight: 82 kg

DRUGS (6)
  1. PEGASYS [Suspect]
     Indication: HEPATITIS C
     Route: 058
     Dates: start: 20080604, end: 20080611
  2. OLMESARTAN MEDOXOMIL [Concomitant]
     Route: 048
     Dates: start: 20020320
  3. BAYASPIRIN [Concomitant]
     Route: 048
     Dates: start: 20020320
  4. URDES [Concomitant]
     Dosage: DRUG NAME: URDESTON
     Route: 048
     Dates: start: 20020320
  5. LIPIDIL [Concomitant]
     Route: 048
     Dates: start: 20041006
  6. LANSOPRAZOLE [Concomitant]
     Route: 048
     Dates: start: 20060929

REACTIONS (2)
  - HEPATIC FUNCTION ABNORMAL [None]
  - HYPOTENSION [None]
